FAERS Safety Report 8178284-6 (Version None)
Quarter: 2012Q1

REPORT INFORMATION
  Report Type: 
  Country: None (occurrence: None)
  Receive Date: 20120126
  Receipt Date: 20111026
  Transmission Date: 20120608
  Serious: No
  Sender: FDA-Public Use
  Company Number: PHHY2011US51486

PATIENT
  Sex: Female

DRUGS (2)
  1. AFINITOR [Suspect]
     Indication: ASTROCYTOMA
     Dosage: 15 MG, TWICE A WEEK, ORAL
     Route: 048
     Dates: start: 20110611, end: 20111024
  2. LAMICTAL [Concomitant]

REACTIONS (1)
  - NO ADVERSE EVENT [None]
